FAERS Safety Report 4524818-X (Version None)
Quarter: 2004Q4

REPORT INFORMATION
  Report Type: 
  Country: None (occurrence: None)
  Receive Date: 20041209
  Receipt Date: 20041209
  Transmission Date: 20050328
  Serious: Yes (Other)
  Sender: FDA-Public Use
  Company Number: None

PATIENT
  Age: 77 Year
  Sex: Male

DRUGS (5)
  1. MEMANTINE  50 [Suspect]
     Indication: DEMENTIA ALZHEIMER'S TYPE
     Dosage: 50MG  BID ORAL
     Route: 048
     Dates: start: 20040305, end: 20040625
  2. RABEPRAZOLE SODIUM [Concomitant]
  3. SIMVASTATIN [Concomitant]
  4. FOLIC ACID [Concomitant]
  5. ISOSORBIDE [Concomitant]

REACTIONS (1)
  - HOMICIDAL IDEATION [None]
